FAERS Safety Report 19164023 (Version 2)
Quarter: 2021Q2

REPORT INFORMATION
  Report Type: Report from Study
  Country: NL (occurrence: NL)
  Receive Date: 20210421
  Receipt Date: 20210520
  Transmission Date: 20210717
  Serious: Yes (Other)
  Sender: FDA-Public Use
  Company Number: NVSC2021NL087578

PATIENT
  Age: 82 Year
  Sex: Female

DRUGS (3)
  1. SANDOSTATINE LAR [Suspect]
     Active Substance: OCTREOTIDE ACETATE
  2. SANDOSTATINE LAR [Suspect]
     Active Substance: OCTREOTIDE ACETATE
  3. SANDOSTATINE LAR [Suspect]
     Active Substance: OCTREOTIDE ACETATE
     Indication: NEUROENDOCRINE TUMOUR
     Dosage: 1 DF, Q4W
     Route: 030

REACTIONS (3)
  - Dislocation of vertebra [Unknown]
  - Dysstasia [Unknown]
  - Back pain [Recovering/Resolving]

NARRATIVE: CASE EVENT DATE: 20210409
